FAERS Safety Report 8277776-9 (Version None)
Quarter: 2012Q2

REPORT INFORMATION
  Report Type: 
  Country: None (occurrence: None)
  Receive Date: 20120412
  Receipt Date: 20120410
  Transmission Date: 20120825
  Serious: No
  Sender: FDA-Public Use
  Company Number: US-TEVA-332967USA

PATIENT
  Sex: Female
  Weight: 53.118 kg

DRUGS (3)
  1. PLAN B ONE-STEP [Suspect]
     Indication: POST COITAL CONTRACEPTION
     Dosage: 1.5 MILLIGRAM;
     Route: 048
     Dates: start: 20120405, end: 20120405
  2. AMPICILLIN [Concomitant]
     Indication: ACNE
  3. PROZAC [Concomitant]
     Indication: DEPRESSION

REACTIONS (2)
  - MENSTRUATION IRREGULAR [None]
  - ABDOMINAL PAIN UPPER [None]
